FAERS Safety Report 8310860-X (Version None)
Quarter: 2012Q2

REPORT INFORMATION
  Report Type: 
  Country: None (occurrence: None)
  Receive Date: 20120423
  Receipt Date: 20120409
  Transmission Date: 20120825
  Serious: Yes (Hospitalization)
  Sender: FDA-Public Use
  Company Number: TPA2012A01988

PATIENT
  Age: 43 Year
  Sex: Male

DRUGS (1)
  1. PREVACID [Suspect]

REACTIONS (1)
  - INTESTINAL GANGRENE [None]
